FAERS Safety Report 24147208 (Version 1)
Quarter: 2024Q3

REPORT INFORMATION
  Report Type: Spontaneous
  Country: PL (occurrence: PL)
  Receive Date: 20240729
  Receipt Date: 20240729
  Transmission Date: 20241017
  Serious: Yes (Hospitalization)
  Sender: AMGEN
  Company Number: PL-AMGEN-POLSP2024145507

PATIENT
  Sex: Female

DRUGS (2)
  1. XGEVA [Suspect]
     Active Substance: DENOSUMAB
     Indication: Bone giant cell tumour
     Dosage: 120 MILLIGRAM
     Route: 065
     Dates: end: 202402
  2. XGEVA [Suspect]
     Active Substance: DENOSUMAB
     Dosage: 120 MILLIGRAM
     Route: 065
     Dates: start: 202402

REACTIONS (6)
  - Tumour haemorrhage [Recovered/Resolved]
  - Pituitary tumour [Recovered/Resolved]
  - Somnolence [Recovered/Resolved]
  - Hypercalcaemia [Recovered/Resolved]
  - Blood pressure increased [Recovered/Resolved]
  - Decreased appetite [Recovered/Resolved]

NARRATIVE: CASE EVENT DATE: 20240201
